FAERS Safety Report 9669529 (Version 2)
Quarter: 2013Q4

REPORT INFORMATION
  Report Type: Spontaneous
  Country: US (occurrence: US)
  Receive Date: 20131105
  Receipt Date: 20131120
  Transmission Date: 20140711
  Serious: No
  Sender: FDA-Public Use
  Company Number: US-PFIZER INC-2013311904

PATIENT
  Age: 40 Year
  Sex: 0

DRUGS (3)
  1. ADVIL COLD AND SINUS [Suspect]
     Indication: SINUS HEADACHE
     Dosage: UNK
  2. ADVIL COLD AND SINUS [Suspect]
     Indication: NASAL CONGESTION
  3. ADVIL COLD AND SINUS [Suspect]
     Indication: COUGH

REACTIONS (2)
  - Off label use [Unknown]
  - Therapeutic response unexpected [Unknown]
